FAERS Safety Report 9361311 (Version 1)
Quarter: 2013Q2

REPORT INFORMATION
  Report Type: Spontaneous
  Country: JP (occurrence: JP)
  Receive Date: 20130621
  Receipt Date: 20130621
  Transmission Date: 20140414
  Serious: No
  Sender: FDA-Public Use
  Company Number: JP-SUCAMPO PHARMA AMERICAS, INC-SPI201300385

PATIENT
  Age: 39 Year
  Sex: Female
  Weight: 53 kg

DRUGS (2)
  1. AMITIZA [Suspect]
     Indication: CONSTIPATION
     Dosage: 24 MCG, BID
     Route: 048
     Dates: start: 20130219, end: 20130301
  2. AMITIZA [Suspect]
     Dosage: 24 MCG, UNK
     Route: 048
     Dates: start: 20130507, end: 20130507

REACTIONS (3)
  - Tachycardia paroxysmal [Recovered/Resolved]
  - Dyspnoea [Unknown]
  - Muscle spasms [Recovered/Resolved]
